FAERS Safety Report 8736392 (Version 2)
Quarter: 2015Q3

REPORT INFORMATION
  Report Type: Report from Study
  Country: US (occurrence: US)
  Receive Date: 20120822
  Receipt Date: 20150729
  Transmission Date: 20151125
  Serious: Yes (Death)
  Sender: FDA-Public Use
  Company Number: US-ROCHE-1093966

PATIENT
  Sex: Male

DRUGS (11)
  1. AVASTIN [Suspect]
     Active Substance: BEVACIZUMAB
     Indication: ANAL CANCER
  2. OXALIPLATIN. [Concomitant]
     Active Substance: OXALIPLATIN
     Route: 065
  3. AVASTIN [Suspect]
     Active Substance: BEVACIZUMAB
     Indication: COLON CANCER
  4. 5-FLUOROURACIL [Concomitant]
     Active Substance: FLUOROURACIL
     Route: 042
  5. AVASTIN [Suspect]
     Active Substance: BEVACIZUMAB
     Indication: RECTOSIGMOID CANCER
     Route: 065
     Dates: start: 20070130
  6. DECADRON [Concomitant]
     Active Substance: DEXAMETHASONE
     Route: 065
  7. ZOFRAN [Concomitant]
     Active Substance: ONDANSETRON HYDROCHLORIDE
     Route: 065
  8. LEUCOVORIN. [Concomitant]
     Active Substance: LEUCOVORIN
     Route: 065
  9. ALOXI [Concomitant]
     Active Substance: PALONOSETRON HYDROCHLORIDE
     Route: 065
  10. CALCIUM GLUCONATE. [Concomitant]
     Active Substance: CALCIUM GLUCONATE
     Route: 065
  11. MAGNESIUM SULPHATE [Concomitant]
     Active Substance: MAGNESIUM SULFATE
     Route: 065

REACTIONS (2)
  - Nausea [Unknown]
  - Death [Fatal]
